FAERS Safety Report 12476277 (Version 1)
Quarter: 2016Q2

REPORT INFORMATION
  Report Type: Spontaneous
  Country: JP (occurrence: JP)
  Receive Date: 20160617
  Receipt Date: 20160617
  Transmission Date: 20160815
  Serious: Yes (Hospitalization)
  Sender: FDA-Public Use
  Company Number: PHJP1900JP003929

PATIENT
  Age: 28 Year
  Sex: Male

DRUGS (9)
  1. PREDILONE//PREDNISOLONE [Concomitant]
     Indication: PROPHYLAXIS AGAINST TRANSPLANT REJECTION
     Dosage: 500-125MG
     Route: 042
  2. PREDILONE//PREDNISOLONE [Concomitant]
     Dosage: 500-125MG
     Route: 042
     Dates: start: 19880430, end: 19880503
  3. ORTHOCLONE OKT3 [Concomitant]
     Active Substance: MUROMONAB-CD3
     Indication: TRANSPLANT REJECTION
     Dosage: 5 MG, QD
     Route: 065
     Dates: start: 19880503, end: 19880513
  4. PRED//PREDNISOLONE [Concomitant]
     Indication: PROPHYLAXIS AGAINST TRANSPLANT REJECTION
     Dosage: UNK
     Route: 048
     Dates: start: 19880515
  5. SANDIMMUN SOLUTION [Suspect]
     Active Substance: CYCLOSPORINE
     Dosage: UNK
     Route: 048
     Dates: end: 19880502
  6. AZATHIOPRINE. [Concomitant]
     Active Substance: AZATHIOPRINE
     Indication: PROPHYLAXIS AGAINST TRANSPLANT REJECTION
     Dosage: UNK
     Route: 048
     Dates: start: 19880515
  7. SANDIMMUN SOLUTION [Suspect]
     Active Substance: CYCLOSPORINE
     Indication: PROPHYLAXIS AGAINST TRANSPLANT REJECTION
     Dosage: 700 UNK, UNK
     Route: 048
     Dates: start: 19880420
  8. ANTI- HUMAN LYMPHOCYTE HORSE IMMUNOGLOBULIN [Concomitant]
     Indication: PROPHYLAXIS AGAINST TRANSPLANT REJECTION
     Dosage: UNK
     Route: 042
     Dates: start: 19880420
  9. SANDIMMUN SOLUTION [Suspect]
     Active Substance: CYCLOSPORINE
     Dosage: UNK
     Route: 048
     Dates: start: 19880514

REACTIONS (1)
  - Atrial fibrillation [Recovering/Resolving]
